FAERS Safety Report 14617480 (Version 2)
Quarter: 2018Q1

REPORT INFORMATION
  Report Type: Spontaneous
  Country: CA (occurrence: CA)
  Receive Date: 20180309
  Receipt Date: 20180320
  Transmission Date: 20180509
  Serious: Yes (Other)
  Sender: FDA-Public Use
  Company Number: PHHY2018CA039755

PATIENT
  Sex: Male

DRUGS (2)
  1. LATANOPROST SANDOZ [Suspect]
     Active Substance: LATANOPROST
     Indication: GLAUCOMA
     Dosage: 1 DF, QD (1X PER DAY IN EACH EYE)
     Route: 047
  2. LATANOPROST SANDOZ [Suspect]
     Active Substance: LATANOPROST
     Dosage: 1 DF, QD (1X PER DAY IN EACH EYE)
     Route: 047

REACTIONS (1)
  - Eye burns [Recovered/Resolved]
